FAERS Safety Report 11221633 (Version 1)
Quarter: 2015Q2

REPORT INFORMATION
  Report Type: Spontaneous
  Country: US (occurrence: GB)
  Receive Date: 20150626
  Receipt Date: 20150626
  Transmission Date: 20150821
  Serious: Yes (Other)
  Sender: FDA-Public Use
  Company Number: GB-FRI-1000077768

PATIENT
  Age: 91 Year
  Sex: Male
  Weight: 77.1 kg

DRUGS (10)
  1. ACLIDINIUM [Suspect]
     Active Substance: ACLIDINIUM BROMIDE
     Indication: CHRONIC OBSTRUCTIVE PULMONARY DISEASE
     Dosage: 2 DF
     Route: 055
     Dates: start: 20150530, end: 20150531
  2. BIMATOPROST. [Concomitant]
     Active Substance: BIMATOPROST
     Dosage: 100 MCG/ML, UNKNOWN
  3. CLINITAS [Concomitant]
  4. VENTOLIN [Concomitant]
     Active Substance: ALBUTEROL SULFATE
     Route: 055
  5. FUROSEMIDE. [Concomitant]
     Active Substance: FUROSEMIDE
  6. SALMETEROL [Concomitant]
     Active Substance: SALMETEROL
  7. BISOPROLOL [Concomitant]
     Active Substance: BISOPROLOL
  8. FUROSEMIDE. [Concomitant]
     Active Substance: FUROSEMIDE
  9. BISOPROLOL [Concomitant]
     Active Substance: BISOPROLOL
  10. WARFARIN [Concomitant]
     Active Substance: WARFARIN

REACTIONS (6)
  - Headache [Recovered/Resolved]
  - Dry mouth [Recovered/Resolved]
  - Dysphagia [Recovered/Resolved]
  - Chest discomfort [Recovered/Resolved]
  - Palpitations [Recovered/Resolved]
  - Feeling cold [Recovered/Resolved]

NARRATIVE: CASE EVENT DATE: 20150531
